FAERS Safety Report 6398006-9 (Version None)
Quarter: 2009Q4

REPORT INFORMATION
  Report Type: 
  Country: None (occurrence: None)
  Receive Date: 20091013
  Receipt Date: 20091002
  Transmission Date: 20100525
  Serious: Yes (Life-Threatening, Hospitalization)
  Sender: FDA-Public Use
  Company Number: JP-ASTRAZENECA-2009SE12824

PATIENT
  Age: 30859 Day
  Sex: Female

DRUGS (3)
  1. MEROPEN [Suspect]
     Indication: URINARY TRACT INFECTION
     Route: 042
     Dates: start: 20090822, end: 20090826
  2. AMINO ACID INJ [Concomitant]
  3. AMINOFLUID [Concomitant]

REACTIONS (4)
  - BLOOD GLUCOSE INCREASED [None]
  - HEPATIC FUNCTION ABNORMAL [None]
  - PLATELET COUNT DECREASED [None]
  - RENAL IMPAIRMENT [None]
